FAERS Safety Report 24110916 (Version 1)
Quarter: 2024Q3

REPORT INFORMATION
  Report Type: Spontaneous
  Country: US (occurrence: US)
  Receive Date: 20240718
  Receipt Date: 20240718
  Transmission Date: 20241017
  Serious: Yes (Hospitalization)
  Sender: SANOFI AVENTIS
  Company Number: US-SANOFI-02135420

PATIENT
  Age: 76 Year
  Sex: Male
  Weight: 74.38 kg

DRUGS (1)
  1. LANTUS SOLOSTAR [Suspect]
     Active Substance: INSULIN GLARGINE
     Indication: Diabetes mellitus
     Dosage: 18 U, QD

REACTIONS (2)
  - Hospitalisation [Unknown]
  - Glycosylated haemoglobin increased [Not Recovered/Not Resolved]

NARRATIVE: CASE EVENT DATE: 20240101
